FAERS Safety Report 5936969-3 (Version None)
Quarter: 2008Q4

REPORT INFORMATION
  Report Type: 
  Country: None (occurrence: None)
  Receive Date: 20081031
  Receipt Date: 20081021
  Transmission Date: 20090506
  Serious: Yes (Other)
  Sender: FDA-Public Use
  Company Number: US-JNJFOC-20081005510

PATIENT
  Sex: Male
  Weight: 147.42 kg

DRUGS (5)
  1. REMICADE [Suspect]
     Indication: CROHN'S DISEASE
     Route: 042
  2. AMPHETAMINE SULFATE [Concomitant]
     Indication: DRUG USE FOR UNKNOWN INDICATION
  3. ASACOL [Concomitant]
     Indication: CROHN'S DISEASE
  4. ADDEROL [Concomitant]
     Indication: DRUG USE FOR UNKNOWN INDICATION
  5. MORPHINE [Concomitant]
     Indication: PAIN

REACTIONS (1)
  - MUSCLE CONTRACTURE [None]
